FAERS Safety Report 15881044 (Version 3)
Quarter: 2019Q1

REPORT INFORMATION
  Report Type: Spontaneous
  Country: PT (occurrence: PT)
  Receive Date: 20190128
  Receipt Date: 20190304
  Transmission Date: 20190417
  Serious: Yes (Death, Hospitalization)
  Sender: FDA-Public Use
  Company Number: PT-MYLANLABS-2019M1007110

PATIENT
  Age: 58 Year
  Sex: Male

DRUGS (3)
  1. PARACETAMOL [Suspect]
     Active Substance: ACETAMINOPHEN
     Indication: PRODUCT USED FOR UNKNOWN INDICATION
     Dosage: UNK
  2. TRAMADOL. [Suspect]
     Active Substance: TRAMADOL
     Indication: PRODUCT USED FOR UNKNOWN INDICATION
     Dosage: UNK
  3. DICLOFENAC                         /00372302/ [Concomitant]
     Active Substance: DICLOFENAC
     Dosage: UNK

REACTIONS (4)
  - Pain [Fatal]
  - Weight decreased [Fatal]
  - Haemolytic anaemia [Fatal]
  - Fatigue [Fatal]

NARRATIVE: CASE EVENT DATE: 20170714
